FAERS Safety Report 4262065-X (Version None)
Quarter: 2004Q1

REPORT INFORMATION
  Report Type: 
  Country: None (occurrence: None)
  Receive Date: 20040102
  Receipt Date: 20031218
  Transmission Date: 20041129
  Serious: Yes (Other)
  Sender: FDA-Public Use
  Company Number: DK-GLAXOSMITHKLINE-B0318167A

PATIENT
  Age: 53 Year
  Sex: Male

DRUGS (1)
  1. SEROXAT [Suspect]

REACTIONS (5)
  - AGGRESSION [None]
  - DEPENDENCE [None]
  - EJACULATION FAILURE [None]
  - FEELING ABNORMAL [None]
  - LIBIDO DECREASED [None]
